FAERS Safety Report 14902402 (Version 10)
Quarter: 2019Q1

REPORT INFORMATION
  Report Type: Report from Study
  Country: None (occurrence: IL)
  Receive Date: 20180516
  Receipt Date: 20190116
  Transmission Date: 20190417
  Serious: Yes (Death, Hospitalization, Disabling, Other)
  Sender: FDA-Public Use
  Company Number: IL-ABBVIE-18K-082-2263009-00

PATIENT
  Age: 69 Year
  Sex: Male

DRUGS (6)
  1. DUODOPA [Suspect]
     Active Substance: CARBIDOPA\LEVODOPA
     Dosage: CURRENT MORNING DOSE 10ML,?CURRENT CONTINUOUS DOSE 3.1ML/HOUR,?CURRENT EXTRA DOSE 1ML
     Route: 050
     Dates: start: 2018, end: 2018
  2. DUODOPA [Suspect]
     Active Substance: CARBIDOPA\LEVODOPA
     Dosage: MD- 10 ML, CURRENT FIXED RATE- 3.1 ML/HOUR, ED- 1 ML.
     Route: 050
     Dates: start: 2018, end: 2018
  3. DUODOPA [Suspect]
     Active Substance: CARBIDOPA\LEVODOPA
     Route: 050
     Dates: start: 20180217, end: 2018
  4. DUODOPA [Suspect]
     Active Substance: CARBIDOPA\LEVODOPA
     Dosage: CMD- 8.5 ML, CFR- 2.2 ML/HOUR, CER- 1.0 ML
     Route: 050
     Dates: start: 20180217
  5. DUODOPA [Suspect]
     Active Substance: CARBIDOPA\LEVODOPA
     Indication: PARKINSON^S DISEASE
     Dosage: TITRATION PHASE
     Route: 050
     Dates: start: 20171228, end: 2018
  6. DUODOPA [Suspect]
     Active Substance: CARBIDOPA\LEVODOPA
     Dosage: CURRENT: MORNING DOSE 10, CONTINUOUS DOSE 3.1, EXTRA DOSE 1 .
     Route: 050
     Dates: start: 20180202

REACTIONS (20)
  - Intestinal obstruction [Fatal]
  - Product dose omission [Unknown]
  - Tremor [Not Recovered/Not Resolved]
  - Dyskinesia [Unknown]
  - Device breakage [Unknown]
  - Device issue [Unknown]
  - On and off phenomenon [Unknown]
  - Therapy non-responder [Unknown]
  - Device connection issue [Unknown]
  - Neoplasm [Unknown]
  - Endoscopy upper gastrointestinal tract abnormal [Not Recovered/Not Resolved]
  - Stoma site hypergranulation [Unknown]
  - Metastases to liver [Fatal]
  - Oesophageal neoplasm [Fatal]
  - Hernia [Fatal]
  - Oesophageal adenocarcinoma [Unknown]
  - Blood pressure abnormal [Unknown]
  - Dizziness [Unknown]
  - Oesophageal carcinoma [Not Recovered/Not Resolved]
  - Constipation [Unknown]

NARRATIVE: CASE EVENT DATE: 20180202
